FAERS Safety Report 11704979 (Version 1)
Quarter: 2015Q4

REPORT INFORMATION
  Report Type: Spontaneous
  Country: CN (occurrence: CN)
  Receive Date: 20151106
  Receipt Date: 20151106
  Transmission Date: 20160304
  Serious: Yes (Other)
  Sender: FDA-Public Use
  Company Number: CN-GLAXOSMITHKLINE-CN2015GSK151129

PATIENT
  Age: 47 Year
  Sex: Male

DRUGS (2)
  1. HEPSERA [Suspect]
     Active Substance: ADEFOVIR DIPIVOXIL
     Indication: HEPATITIS B
     Dosage: UNK
  2. LAMIVUDINE. [Suspect]
     Active Substance: LAMIVUDINE
     Indication: HEPATITIS B

REACTIONS (6)
  - Osteomalacia [Recovered/Resolved]
  - Gait disturbance [Recovered/Resolved]
  - Dysstasia [Recovered/Resolved]
  - Back pain [Recovered/Resolved]
  - Drug resistance [Unknown]
  - Bone pain [Recovered/Resolved]
